FAERS Safety Report 5245454-6 (Version None)
Quarter: 2007Q1

REPORT INFORMATION
  Report Type: 
  Country: None (occurrence: None)
  Receive Date: 20070223
  Receipt Date: 20070214
  Transmission Date: 20070707
  Serious: Yes (Other)
  Sender: FDA-Public Use
  Company Number: GB-ELI_LILLY_AND_COMPANY-GB200702002723

PATIENT
  Sex: Female

DRUGS (2)
  1. HUMALOG MIX 75/25 [Suspect]
     Dosage: UNK, 2/D
  2. HUMALOG [Suspect]
     Dosage: 50 U, 2/D

REACTIONS (2)
  - HYPOGLYCAEMIA [None]
  - WRONG DRUG ADMINISTERED [None]
